FAERS Safety Report 18130046 (Version 1)
Quarter: 2020Q3

REPORT INFORMATION
  Report Type: Spontaneous
  Country: US (occurrence: US)
  Receive Date: 20200810
  Receipt Date: 20200810
  Transmission Date: 20201103
  Serious: Yes (Death)
  Sender: FDA-Public Use
  Company Number: None

PATIENT
  Age: 78 Year
  Sex: Male

DRUGS (9)
  1. CLOPIDOGREL [Concomitant]
     Active Substance: CLOPIDOGREL BISULFATE
     Dates: start: 20200613, end: 20200707
  2. TACROLIMUS. [Suspect]
     Active Substance: TACROLIMUS
     Indication: LIVER TRANSPLANT
     Route: 048
     Dates: start: 20181210, end: 20200707
  3. ROSUVASTATIN 20MG [Concomitant]
     Active Substance: ROSUVASTATIN
     Dates: start: 20200613, end: 20200707
  4. FUROSEMIDE 40MG [Concomitant]
     Active Substance: FUROSEMIDE
     Dates: start: 20200613, end: 20200707
  5. GABAPENTIN 100MG [Concomitant]
     Active Substance: GABAPENTIN
     Dates: start: 20190112, end: 20200707
  6. CARVEDILOL 3.125MG [Concomitant]
     Active Substance: CARVEDILOL
     Dates: start: 20200613, end: 20200707
  7. ESCITALOPRAM 10MG [Concomitant]
     Active Substance: ESCITALOPRAM OXALATE
     Dates: start: 20190206, end: 20200707
  8. ALBUTEROL 0.083% [Concomitant]
     Active Substance: ALBUTEROL
     Dates: start: 20200613, end: 20200707
  9. PANTOPRAZOLE 40MG [Concomitant]
     Active Substance: PANTOPRAZOLE SODIUM
     Dates: start: 20200613, end: 20200707

REACTIONS (1)
  - Death [None]

NARRATIVE: CASE EVENT DATE: 20200707
